FAERS Safety Report 7674861-7 (Version None)
Quarter: 2011Q3

REPORT INFORMATION
  Report Type: 
  Country: None (occurrence: None)
  Receive Date: 20110810
  Receipt Date: 20110729
  Transmission Date: 20111222
  Serious: Yes (Other)
  Sender: FDA-Public Use
  Company Number: GB-UCBSA-021932

PATIENT
  Age: 22 Year
  Sex: Male

DRUGS (5)
  1. LACOSAMIDE [Suspect]
     Indication: EPILEPSY
     Dosage: TITRATED DOSE UPTO 100MG
  2. LACOSAMIDE [Suspect]
  3. CARBAMAZEPINE [Interacting]
     Indication: EPILEPSY
  4. CARBAMAZEPINE [Interacting]
  5. LACOSAMIDE [Suspect]

REACTIONS (5)
  - DIZZINESS [None]
  - NEUROTOXICITY [None]
  - DRUG INTERACTION [None]
  - VISION BLURRED [None]
  - DEPRESSED LEVEL OF CONSCIOUSNESS [None]
